FAERS Safety Report 20004965 (Version 2)
Quarter: 2021Q4

REPORT INFORMATION
  Report Type: Spontaneous
  Country: CH (occurrence: CH)
  Receive Date: 20211027
  Receipt Date: 20211118
  Transmission Date: 20220303
  Serious: Yes (Other)
  Sender: FDA-Public Use
  Company Number: None

PATIENT
  Age: 56 Year
  Sex: Male

DRUGS (9)
  1. NOXAFIL [Suspect]
     Active Substance: POSACONAZOLE
     Dosage: 100 MILLIGRAM, Q8H
     Route: 048
     Dates: start: 20210805, end: 20210903
  2. SULFAMETHOXAZOLE\TRIMETHOPRIM [Suspect]
     Active Substance: SULFAMETHOXAZOLE\TRIMETHOPRIM
     Dosage: UNK
     Route: 048
     Dates: start: 20210802
  3. PANTOZOL [Suspect]
     Active Substance: PANTOPRAZOLE SODIUM
     Dosage: 40 MILLIGRAM
     Route: 048
     Dates: start: 20210803
  4. IDARUBICIN [Concomitant]
     Active Substance: IDARUBICIN
     Dosage: CYCLICAL
     Dates: start: 20210803, end: 20210810
  5. CYTARABINE [Concomitant]
     Active Substance: CYTARABINE
     Dosage: CYCLICAL
     Dates: start: 20210803, end: 20210810
  6. CEFEPIME [Concomitant]
     Active Substance: CEFEPIME HYDROCHLORIDE
     Dosage: 2 GRAM, Q8H
     Route: 042
     Dates: start: 20210810, end: 20210816
  7. AMIKACIN [Concomitant]
     Active Substance: AMIKACIN
     Dosage: 1 GRAM, Q24H
     Route: 042
     Dates: start: 20210810, end: 20210812
  8. VALACYCLOVIR HYDROCHLORIDE [Concomitant]
     Active Substance: VALACYCLOVIR HYDROCHLORIDE
     Dosage: 500 MILLIGRAM, Q12H
     Route: 048
     Dates: start: 20210730
  9. ALLOPURINOLUM [Concomitant]
     Dosage: 300 MILLIGRAM, Q24H
     Route: 048
     Dates: start: 20210803, end: 20210811

REACTIONS (1)
  - Rhabdomyolysis [Recovered/Resolved]

NARRATIVE: CASE EVENT DATE: 20210814
